FAERS Safety Report 4455681-3 (Version None)
Quarter: 2004Q3

REPORT INFORMATION
  Report Type: 
  Country: None (occurrence: None)
  Receive Date: 20040917
  Receipt Date: 20040901
  Transmission Date: 20050211
  Serious: Yes (Hospitalization)
  Sender: FDA-Public Use
  Company Number: USA040260105

PATIENT
  Age: 64 Year
  Sex: Female

DRUGS (15)
  1. ZYPREXA [Suspect]
     Dates: end: 20031217
  2. PROZAC [Suspect]
     Indication: DEPRESSION
     Dosage: 20 MG DAY
     Dates: start: 20031203
  3. COGENTIN [Concomitant]
  4. ATIVAN [Concomitant]
  5. LORTAB [Concomitant]
  6. QUININE [Concomitant]
  7. NYSTATIN [Concomitant]
  8. DIFLUCAN [Concomitant]
  9. LITHIUM [Concomitant]
  10. DEPAKOTE [Concomitant]
  11. METFORMIN HCL [Concomitant]
  12. DEMADEX [Concomitant]
  13. GLYBURIDE [Concomitant]
  14. SYNTRHOID (LEVOTHYROXINE SODIUM) [Concomitant]
  15. RESTORIL [Concomitant]

REACTIONS (7)
  - COUGH [None]
  - ESCHERICHIA URINARY TRACT INFECTION [None]
  - HALLUCINATION [None]
  - LUNG INFILTRATION [None]
  - MEMORY IMPAIRMENT [None]
  - NEUROLEPTIC MALIGNANT SYNDROME [None]
  - RESPIRATORY ALKALOSIS [None]
